FAERS Safety Report 14940603 (Version 3)
Quarter: 2018Q3

REPORT INFORMATION
  Report Type: Spontaneous
  Country: JP (occurrence: JP)
  Receive Date: 20180525
  Receipt Date: 20180904
  Transmission Date: 20181010
  Serious: Yes (Hospitalization, Other)
  Sender: FDA-Public Use
  Company Number: JP-009507513-1704JPN002301J

PATIENT
  Age: 76 Year
  Sex: Female
  Weight: 42 kg

DRUGS (9)
  1. AMBROXOL HYDROCHLORIDE [Concomitant]
     Active Substance: AMBROXOL HYDROCHLORIDE
     Indication: LUNG ADENOCARCINOMA
     Dosage: 45 MG, QD
     Route: 048
  2. PREDONINE [Concomitant]
     Active Substance: PREDNISOLONE
     Indication: LUNG ADENOCARCINOMA
     Dosage: 30 MG, QD
     Route: 048
     Dates: end: 20171011
  3. LOXONIN [Concomitant]
     Active Substance: LOXOPROFEN SODIUM
     Indication: LUNG ADENOCARCINOMA
     Dosage: 1.0 DF, TID
     Route: 048
  4. LAC?B [Concomitant]
     Active Substance: BIFIDOBACTERIUM SPP.
     Indication: LUNG ADENOCARCINOMA
     Dosage: 2.0 MG, BID
     Route: 048
  5. KEYTRUDA [Suspect]
     Active Substance: PEMBROLIZUMAB
     Indication: LUNG ADENOCARCINOMA
     Dosage: 200 MG, Q3W
     Route: 041
     Dates: start: 20170405, end: 20180314
  6. FUROSEMIDE. [Concomitant]
     Active Substance: FUROSEMIDE
     Indication: LUNG ADENOCARCINOMA
     Dosage: 20 MG, QD
     Route: 048
  7. CLEANAL [Concomitant]
     Active Substance: FUDOSTEINE
     Indication: LUNG ADENOCARCINOMA
     Dosage: 400 MG, TID
     Route: 048
  8. POLAPREZINC [Concomitant]
     Active Substance: POLAPREZINC
     Indication: LUNG ADENOCARCINOMA
     Dosage: 75 MG, BID
     Route: 048
  9. SPIRONOLACTONE. [Concomitant]
     Active Substance: SPIRONOLACTONE
     Indication: LUNG ADENOCARCINOMA
     Dosage: 25 MG, QD
     Route: 048

REACTIONS (2)
  - Drug eruption [Recovered/Resolved]
  - Malignant neoplasm progression [Not Recovered/Not Resolved]

NARRATIVE: CASE EVENT DATE: 20170412
